FAERS Safety Report 25794434 (Version 3)
Quarter: 2025Q4

REPORT INFORMATION
  Report Type: Spontaneous
  Country: CA (occurrence: CA)
  Receive Date: 20250912
  Receipt Date: 20251112
  Transmission Date: 20260118
  Serious: Yes (Other)
  Sender: CELLTRION
  Company Number: CA-CELLTRION INC.-2025CA023253

PATIENT

DRUGS (3)
  1. INFLIXIMAB [Suspect]
     Active Substance: INFLIXIMAB
     Indication: Crohn^s disease
     Dosage: 10 MG/KG EVERY 8 WEEKS
     Route: 042
     Dates: start: 20250710
  2. INFLIXIMAB [Suspect]
     Active Substance: INFLIXIMAB
     Indication: Anaemia
     Dosage: MAINTENANCE - 10 MG/KG EVERY 8 WEEKS
     Route: 042
     Dates: start: 20250904
  3. INFLIXIMAB [Suspect]
     Active Substance: INFLIXIMAB
     Dosage: MAINTENANCE - 10 MG/KG EVERY 8 WEEKS
     Route: 042
     Dates: start: 20251105

REACTIONS (6)
  - Haematochezia [Not Recovered/Not Resolved]
  - Pigmentation disorder [Recovering/Resolving]
  - Off label use [Unknown]
  - Off label use [Unknown]
  - Product dose omission issue [Unknown]
  - Inappropriate schedule of product administration [Unknown]

NARRATIVE: CASE EVENT DATE: 20251001
